FAERS Safety Report 4427261-7 (Version None)
Quarter: 2004Q3

REPORT INFORMATION
  Report Type: 
  Country: None (occurrence: None)
  Receive Date: 20040813
  Receipt Date: 20040813
  Transmission Date: 20050211
  Serious: Yes (Hospitalization)
  Sender: FDA-Public Use
  Company Number: None

PATIENT
  Age: 75 Year
  Sex: Male
  Weight: 76.3 kg

DRUGS (11)
  1. VELCADE [Suspect]
     Indication: NON-SMALL CELL LUNG CANCER
     Dosage: 0.54 MG
     Dates: start: 20040802
  2. TAXOL [Suspect]
     Indication: NON-SMALL CELL LUNG CANCER
     Dosage: 90 MG
     Dates: start: 20040802
  3. CARBOPLATIN [Suspect]
     Indication: NON-SMALL CELL LUNG CANCER
     Dosage: 156 MG
     Dates: start: 20040802
  4. ASPIRIN [Concomitant]
  5. AVANDIA [Concomitant]
  6. LASIX [Concomitant]
  7. ZESTRIL [Concomitant]
  8. CALCIUM [Concomitant]
  9. MULTI-VITAMINS [Concomitant]
  10. IRON [Concomitant]
  11. SUDAFED S.A. [Concomitant]

REACTIONS (4)
  - ATRIAL FIBRILLATION [None]
  - CONSTIPATION [None]
  - HYPOTENSION [None]
  - PAIN [None]
